FAERS Safety Report 5488327-6 (Version None)
Quarter: 2007Q4

REPORT INFORMATION
  Report Type: 
  Country: None (occurrence: None)
  Receive Date: 20071017
  Receipt Date: 20071016
  Transmission Date: 20080405
  Serious: Yes (Hospitalization)
  Sender: FDA-Public Use
  Company Number: A0684193A

PATIENT
  Age: 65 Year
  Sex: Female
  Weight: 70.3 kg

DRUGS (3)
  1. LAPATINIB [Suspect]
     Dosage: 1000MG PER DAY
     Route: 048
  2. TAXOTERE [Suspect]
     Dosage: 75MGM2 CYCLIC
     Route: 042
     Dates: start: 20070918
  3. TRASTUZUMAB [Suspect]
     Dosage: 4MGK WEEKLY
     Route: 042

REACTIONS (1)
  - FEBRILE NEUTROPENIA [None]
